FAERS Safety Report 8557240-X (Version None)
Quarter: 2012Q3

REPORT INFORMATION
  Report Type: 
  Country: None (occurrence: None)
  Receive Date: 20120801
  Receipt Date: 20120727
  Transmission Date: 20120928
  Serious: Yes (Hospitalization)
  Sender: FDA-Public Use
  Company Number: PHHY2012DE002971

PATIENT
  Age: 74 Year
  Sex: Male
  Weight: 86 kg

DRUGS (5)
  1. RASILEZ [Suspect]
     Dosage: 1 DF/ DAY
     Route: 048
     Dates: start: 20080627, end: 20120101
  2. TAMSULOSIN HCL [Concomitant]
     Dosage: 0.4 MG/DAY
     Route: 048
     Dates: start: 20110101
  3. METOPROLOL SUCCINATE [Concomitant]
     Dosage: 95 MG/DAY
     Route: 048
  4. ATACAND [Concomitant]
     Dosage: 16 MG/DAY
     Route: 048
  5. NORVASC [Concomitant]
     Dosage: 10 MG/DAY
     Route: 048

REACTIONS (1)
  - ARRHYTHMIA [None]
